FAERS Safety Report 20137805 (Version 3)
Quarter: 2023Q2

REPORT INFORMATION
  Report Type: Spontaneous
  Country: ES (occurrence: ES)
  Receive Date: 20211202
  Receipt Date: 20230529
  Transmission Date: 20230722
  Serious: Yes (Other)
  Sender: FDA-Public Use
  Company Number: ES-Gedeon Richter Plc.-2021_GR_009117

PATIENT
  Sex: Female
  Weight: 64 kg

DRUGS (9)
  1. NAPROXEN [Suspect]
     Active Substance: NAPROXEN
     Indication: Headache
     Dosage: UNK (2 TABLETS PER 24 HOURS)
     Route: 048
     Dates: start: 20211111, end: 20211111
  2. NAPROXEN [Suspect]
     Active Substance: NAPROXEN
     Indication: Back pain
  3. TERIPARATIDE [Suspect]
     Active Substance: TERIPARATIDE
     Indication: Osteoporosis
     Dosage: UNK (20MCG/80MCL)
     Route: 058
     Dates: start: 20211106, end: 20211112
  4. ATORVASTATIN [Concomitant]
     Active Substance: ATORVASTATIN
     Indication: Product used for unknown indication
     Dosage: UNK (1 TABLET PER 24 HOURS)
     Route: 065
  5. ACETAMINOPHEN [Concomitant]
     Active Substance: ACETAMINOPHEN
     Indication: Product used for unknown indication
     Dosage: UNK (2 TABLETS PER 24 HOURS)
     Route: 065
  6. IRBESARTAN [Concomitant]
     Active Substance: IRBESARTAN
     Indication: Product used for unknown indication
     Dosage: UNK (1 TABLET PER 24 HOURS)
     Route: 048
  7. OMEPRAZOLE [Concomitant]
     Active Substance: OMEPRAZOLE
     Indication: Product used for unknown indication
     Dosage: UNK (1 TABLET PER 24 HOURS)
     Route: 065
  8. PRODERMA [Concomitant]
     Indication: Product used for unknown indication
     Dosage: UNK (1 TABLET PER 24 HOURS)
     Route: 065
  9. METAMIZOL [Concomitant]
     Active Substance: METAMIZOLE SODIUM
     Indication: Product used for unknown indication
     Dosage: UNK (2 CAPSULES PER 24HOURS)
     Route: 065

REACTIONS (6)
  - Blindness transient [Recovered/Resolved]
  - Headache [Recovered/Resolved]
  - Back pain [Not Recovered/Not Resolved]
  - Hyperhidrosis [Recovered/Resolved]
  - Dizziness [Recovered/Resolved]
  - Hypotension [Recovered/Resolved]

NARRATIVE: CASE EVENT DATE: 20211101
